FAERS Safety Report 11241052 (Version 2)
Quarter: 2015Q4

REPORT INFORMATION
  Report Type: Report from Study
  Country: BR (occurrence: BR)
  Receive Date: 20150706
  Receipt Date: 20151030
  Transmission Date: 20160304
  Serious: Yes (Other)
  Sender: FDA-Public Use
  Company Number: BR-GLAXOSMITHKLINE-BR2015GSK095675

PATIENT
  Age: 44 Year
  Sex: Female
  Weight: 60 kg

DRUGS (1)
  1. BELIMUMAB [Suspect]
     Active Substance: BELIMUMAB
     Indication: SYSTEMIC LUPUS ERYTHEMATOSUS
     Dosage: UNK
     Dates: end: 20150529

REACTIONS (6)
  - Eye inflammation [Unknown]
  - Nervousness [Unknown]
  - Cataract [Unknown]
  - Blindness [Not Recovered/Not Resolved]
  - General physical condition abnormal [Unknown]
  - Crying [Unknown]
